FAERS Safety Report 4379058-4 (Version None)
Quarter: 2004Q2

REPORT INFORMATION
  Report Type: 
  Country: None (occurrence: None)
  Receive Date: 20040610
  Receipt Date: 20040422
  Transmission Date: 20050107
  Serious: Yes (Hospitalization)
  Sender: FDA-Public Use
  Company Number: 2004207468JP

PATIENT
  Age: 74 Year
  Sex: Male
  Weight: 47.2 kg

DRUGS (5)
  1. CAMPTOSAR [Suspect]
     Indication: GASTRIC CANCER
     Dosage: 80 MG/M2, CYCLIC, IV DRIP
     Route: 041
     Dates: start: 20040302, end: 20040309
  2. TS-1 (TEGAFUR, GIMESTAT, OTASTAT POTASSIUM) [Suspect]
     Indication: GASTRIC CANCER
     Dosage: 120 MG (60 MGX2), CYCLIC, DAY 1, ORAL
     Route: 048
     Dates: start: 20040302, end: 20040309
  3. VITAMEDIN [Concomitant]
  4. LOXONIN (LOXOPROFEN SODIUM) [Concomitant]
  5. MS CONTIN [Concomitant]

REACTIONS (11)
  - ANOREXIA [None]
  - BLOOD PRESSURE DECREASED [None]
  - COAGULOPATHY [None]
  - DIARRHOEA [None]
  - GENERAL PHYSICAL HEALTH DETERIORATION [None]
  - GRANULOCYTOPENIA [None]
  - HAEMATOTOXICITY [None]
  - LEUKOPENIA [None]
  - NAUSEA [None]
  - THROMBOCYTOPENIA [None]
  - VOMITING [None]
